FAERS Safety Report 9520576 (Version 2)
Quarter: 2013Q4

REPORT INFORMATION
  Report Type: Spontaneous
  Country: US (occurrence: US)
  Receive Date: 20130913
  Receipt Date: 20131025
  Transmission Date: 20140711
  Serious: No
  Sender: FDA-Public Use
  Company Number: US-BIOGENIDEC-2013BI085404

PATIENT
  Sex: Female

DRUGS (1)
  1. AVONEX [Suspect]
     Indication: MULTIPLE SCLEROSIS
     Route: 030
     Dates: start: 20130810

REACTIONS (17)
  - Back injury [Unknown]
  - Intervertebral disc protrusion [Unknown]
  - Hearing impaired [Unknown]
  - Gastrooesophageal reflux disease [Unknown]
  - Cognitive disorder [Unknown]
  - Memory impairment [Unknown]
  - Central nervous system lesion [Unknown]
  - Glaucoma [Unknown]
  - Speech disorder [Unknown]
  - Depressed mood [Unknown]
  - Muscle tightness [Unknown]
  - Nausea [Unknown]
  - Vomiting [Unknown]
  - Pain [Unknown]
  - Muscle spasms [Unknown]
  - Asthenia [Unknown]
  - Multiple sclerosis relapse [Unknown]
